FAERS Safety Report 6126192-4 (Version None)
Quarter: 2009Q1

REPORT INFORMATION
  Report Type: 
  Country: None (occurrence: None)
  Receive Date: 20090320
  Receipt Date: 20090311
  Transmission Date: 20090719
  Serious: Yes (Hospitalization)
  Sender: FDA-Public Use
  Company Number: B0564458A

PATIENT
  Age: 63 Year
  Sex: Male

DRUGS (7)
  1. ONDANSETRON HCL [Suspect]
     Indication: DRUG USE FOR UNKNOWN INDICATION
     Dosage: 8MG PER DAY
     Route: 042
     Dates: start: 20090112, end: 20090112
  2. ELOXATIN [Suspect]
     Indication: DRUG USE FOR UNKNOWN INDICATION
     Route: 042
     Dates: start: 20090113, end: 20090113
  3. GEMZAR [Suspect]
     Indication: DRUG USE FOR UNKNOWN INDICATION
     Dosage: 1000MGM2 SINGLE DOSE
     Route: 042
     Dates: start: 20090112, end: 20090112
  4. AVASTIN [Suspect]
     Indication: DRUG USE FOR UNKNOWN INDICATION
     Dosage: 5MGK SINGLE DOSE
     Route: 042
     Dates: start: 20090112, end: 20090112
  5. POLARAMINE IV [Concomitant]
     Indication: PREMEDICATION
     Route: 042
     Dates: start: 20090113, end: 20090113
  6. AZANTAC [Concomitant]
     Indication: PREMEDICATION
     Route: 042
     Dates: start: 20090113, end: 20090113
  7. SOLU-MEDROL [Concomitant]
     Indication: PREMEDICATION
     Dosage: 40MG UNKNOWN
     Route: 042
     Dates: start: 20090113, end: 20090113

REACTIONS (2)
  - DYSPNOEA [None]
  - RASH [None]
